FAERS Safety Report 15038029 (Version 1)
Quarter: 2018Q2

REPORT INFORMATION
  Report Type: Spontaneous
  Country: NL (occurrence: NL)
  Receive Date: 20180620
  Receipt Date: 20180620
  Transmission Date: 20180711
  Serious: Yes (Other)
  Sender: FDA-Public Use
  Company Number: NL-TEVA-2018-NL-910149

PATIENT
  Sex: Male

DRUGS (4)
  1. NIFEDIPINE TABLET MGA 30MG TABLET MET GEREGULEERDE AFGIFTE, 30 MG (MIL [Suspect]
     Active Substance: NIFEDIPINE
     Indication: HYPERTENSION
     Dosage: 1 DD 1 TABLET
     Dates: start: 20180128, end: 20180228
  2. ELIQUIS [Concomitant]
     Active Substance: APIXABAN
     Dosage: 2DD1
     Route: 065
     Dates: start: 20180128
  3. FUROSEMIDE 20MG [Concomitant]
     Active Substance: FUROSEMIDE
     Dosage: 20 MILLIGRAM DAILY; 1DD1
     Route: 065
     Dates: start: 20180128
  4. METOPROLOL SUCCINAAT [Concomitant]
     Active Substance: METOPROLOL SUCCINATE
     Dosage: 200 MILLIGRAM DAILY; 1DD1
     Route: 065
     Dates: start: 20180131

REACTIONS (2)
  - Angioedema [Unknown]
  - Paraesthesia oral [Unknown]
